FAERS Safety Report 5753969-7 (Version None)
Quarter: 2008Q2

REPORT INFORMATION
  Report Type: 
  Country: None (occurrence: None)
  Receive Date: 20080527
  Receipt Date: 20080527
  Transmission Date: 20081010
  Serious: Yes (Hospitalization)
  Sender: FDA-Public Use
  Company Number: None

PATIENT
  Sex: Female
  Weight: 158.759 kg

DRUGS (1)
  1. MIRENA [Suspect]
     Indication: CONTRACEPTION
     Dates: start: 20070125, end: 20080514

REACTIONS (8)
  - ANAEMIA [None]
  - FUNGAL INFECTION [None]
  - HAEMORRHAGIC OVARIAN CYST [None]
  - IMPAIRED WORK ABILITY [None]
  - METRORRHAGIA [None]
  - PROCEDURAL PAIN [None]
  - VAGINAL DISCHARGE [None]
  - VAGINITIS BACTERIAL [None]
